FAERS Safety Report 5351569-4 (Version None)
Quarter: 2007Q2

REPORT INFORMATION
  Report Type: 
  Country: None (occurrence: None)
  Receive Date: 20070608
  Receipt Date: 20070531
  Transmission Date: 20071010
  Serious: Yes (Hospitalization)
  Sender: FDA-Public Use
  Company Number: CA-GENENTECH-242345

PATIENT
  Sex: Female
  Weight: 48.4 kg

DRUGS (1)
  1. SOMATROPIN [Suspect]
     Indication: TURNER'S SYNDROME
     Dosage: 2.7 MG, UNKNOWN
     Route: 065
     Dates: start: 20060605

REACTIONS (1)
  - DIABETES MELLITUS [None]
